FAERS Safety Report 24375700 (Version 1)
Quarter: 2024Q3

REPORT INFORMATION
  Report Type: Spontaneous
  Country: CA (occurrence: CA)
  Receive Date: 20240928
  Receipt Date: 20240928
  Transmission Date: 20241016
  Serious: Yes (Hospitalization, Other)
  Sender: CELLTRION
  Company Number: CA-CELLTRION INC.-2024CA022915

PATIENT

DRUGS (1)
  1. YUFLYMA [Suspect]
     Active Substance: ADALIMUMAB-AATY
     Indication: Crohn^s disease
     Dosage: YUFLYMA 40MG SC Q 2 WEEKS, WILL STOP AFTER NEXT 2 INJECTIONS
     Route: 058
     Dates: start: 20231013

REACTIONS (4)
  - Crohn^s disease [Not Recovered/Not Resolved]
  - Skin exfoliation [Not Recovered/Not Resolved]
  - Infection [Not Recovered/Not Resolved]
  - Therapeutic product effect decreased [Not Recovered/Not Resolved]
